FAERS Safety Report 15225502 (Version 2)
Quarter: 2018Q3

REPORT INFORMATION
  Report Type: Spontaneous
  Country: US (occurrence: US)
  Receive Date: 20180801
  Receipt Date: 20180925
  Transmission Date: 20181010
  Serious: Yes (Hospitalization)
  Sender: FDA-Public Use
  Company Number: US-ABBVIE-18K-163-2432803-00

PATIENT
  Age: 60 Year
  Sex: Female
  Weight: 95.34 kg

DRUGS (5)
  1. METHOTREXATE. [Suspect]
     Active Substance: METHOTREXATE
     Indication: RHEUMATOID ARTHRITIS
     Route: 048
  2. PREDNISONE. [Suspect]
     Active Substance: PREDNISONE
     Indication: PRODUCT USED FOR UNKNOWN INDICATION
     Route: 048
  3. HUMIRA [Suspect]
     Active Substance: ADALIMUMAB
     Indication: RHEUMATOID ARTHRITIS
     Route: 058
  4. ORENCIA [Suspect]
     Active Substance: ABATACEPT
     Indication: RHEUMATOID ARTHRITIS
     Route: 065
  5. XELJANZ XR [Suspect]
     Active Substance: TOFACITINIB CITRATE
     Indication: RHEUMATOID ARTHRITIS
     Route: 065
     Dates: end: 201807

REACTIONS (18)
  - Drug ineffective [Unknown]
  - Spinal column stenosis [Unknown]
  - Neuropathy peripheral [Unknown]
  - Alopecia [Unknown]
  - Intervertebral disc protrusion [Unknown]
  - Ataxia [Unknown]
  - Joint injury [Unknown]
  - Dry eye [Unknown]
  - Pain [Unknown]
  - Head injury [Unknown]
  - Lumbar spinal stenosis [Unknown]
  - Weight increased [Unknown]
  - Face injury [Unknown]
  - Fall [Unknown]
  - Cervical spinal stenosis [Unknown]
  - Fall [Unknown]
  - Post-traumatic pain [Unknown]
  - Spinal disorder [Unknown]

NARRATIVE: CASE EVENT DATE: 201805
